FAERS Safety Report 9203894 (Version 1)
Quarter: 2013Q2

REPORT INFORMATION
  Report Type: Spontaneous
  Country: AE (occurrence: AE)
  Receive Date: 20130402
  Receipt Date: 20130402
  Transmission Date: 20140414
  Serious: Yes (Other)
  Sender: FDA-Public Use
  Company Number: AE-NOVOPROD-374422

PATIENT
  Age: 34 Year
  Sex: Female
  Weight: 44 kg

DRUGS (1)
  1. NOVOMIX 30 FLEXPEN [Suspect]
     Indication: GESTATIONAL DIABETES
     Dosage: UNK
     Route: 058

REACTIONS (2)
  - Abortion spontaneous [Unknown]
  - Exposure during pregnancy [Unknown]
